FAERS Safety Report 7313191-X (Version None)
Quarter: 2011Q1

REPORT INFORMATION
  Report Type: 
  Country: None (occurrence: None)
  Receive Date: 20110225
  Receipt Date: 20110215
  Transmission Date: 20110831
  Serious: Yes (Other)
  Sender: FDA-Public Use
  Company Number: CA-JNJFOC-20110205332

PATIENT
  Sex: Female
  Weight: 77.7 kg

DRUGS (9)
  1. DAPSONE [Concomitant]
  2. SOLU-CORTEF [Concomitant]
  3. COUMADIN [Concomitant]
  4. BENADRYL [Concomitant]
  5. REACTINE [Concomitant]
  6. FLOVENT [Concomitant]
  7. PRADAXA [Concomitant]
  8. REMICADE [Suspect]
     Indication: COLITIS ULCERATIVE
     Route: 042
  9. IMURAN [Concomitant]

REACTIONS (1)
  - OESOPHAGEAL CANDIDIASIS [None]
